FAERS Safety Report 9826157 (Version 1)
Quarter: 2013Q4

REPORT INFORMATION
  Report Type: Spontaneous
  Country: US (occurrence: None)
  Receive Date: 20131104
  Receipt Date: 20131104
  Transmission Date: 20140711
  Serious: Yes (Other)
  Sender: FDA-Public Use
  Company Number: 1000047481

PATIENT
  Age: 82 Year
  Sex: Female

DRUGS (6)
  1. DALIRESP [Suspect]
     Indication: CHRONIC OBSTRUCTIVE PULMONARY DISEASE
     Dosage: 500 MCG, (500 MCG, 1 IN 1 D), ORAL
     Route: 048
     Dates: start: 201306, end: 201306
  2. DALIRESP [Suspect]
     Indication: CHRONIC OBSTRUCTIVE PULMONARY DISEASE
     Dosage: 500 MCG, 1 IN 2 D
     Route: 048
     Dates: start: 201307, end: 20130730
  3. ADVAIR (SERETIDE) (SERETIDE) [Concomitant]
  4. SPIRIVA (TIOTROPIUM BROMIDE) (TIOTROPIUM BROMIDE) [Concomitant]
  5. ALBUTEROL SULFATE (SALBUTAMOL SULFATE) (SALBUTAMOL SULFATE)? [Concomitant]
  6. LEVOTHYROXINE (LEVOTHYROXINE SODIUM) (LEVOTHROXINE SODIUM)? [Concomitant]

REACTIONS (4)
  - Dyspnoea [None]
  - Nausea [None]
  - Cough [None]
  - Rhinorrhoea [None]
